FAERS Safety Report 14840805 (Version 1)
Quarter: 2018Q2

REPORT INFORMATION
  Report Type: Spontaneous
  Country: GB (occurrence: GB)
  Receive Date: 20180503
  Receipt Date: 20180503
  Transmission Date: 20180711
  Serious: Yes (Hospitalization)
  Sender: FDA-Public Use
  Company Number: GB-TEVA-2018-GB-888102

PATIENT
  Age: 71 Year
  Sex: Female
  Weight: 75 kg

DRUGS (6)
  1. CARBOCISTEINE [Concomitant]
     Active Substance: CARBOCYSTEINE
  2. OMEPRAZOLE. [Concomitant]
     Active Substance: OMEPRAZOLE
  3. DIPYRIDAMOLE. [Suspect]
     Active Substance: DIPYRIDAMOLE
     Indication: TRANSIENT ISCHAEMIC ATTACK
     Dosage: 400 MILLIGRAM DAILY;
     Route: 048
     Dates: start: 200706, end: 20180103
  4. RAMIPRIL. [Concomitant]
     Active Substance: RAMIPRIL
  5. ACETYLSALICYLIC ACID [Suspect]
     Active Substance: ASPIRIN
     Indication: TRANSIENT ISCHAEMIC ATTACK
     Dosage: 75 MILLIGRAM DAILY;
     Route: 048
     Dates: start: 200706
  6. ATORVASTATIN [Concomitant]
     Active Substance: ATORVASTATIN

REACTIONS (2)
  - Abdominal pain [Unknown]
  - Duodenal ulcer perforation [Recovered/Resolved]

NARRATIVE: CASE EVENT DATE: 20180102
